FAERS Safety Report 8922191 (Version 3)
Quarter: 2017Q2

REPORT INFORMATION
  Report Type: Spontaneous
  Country: US (occurrence: US)
  Receive Date: 20121126
  Receipt Date: 20170627
  Transmission Date: 20170830
  Serious: Yes (Hospitalization, Other)
  Sender: FDA-Public Use
  Company Number: US-AMGEN-USASP2012075253

PATIENT
  Age: 28 Year
  Sex: Female
  Weight: 70.3 kg

DRUGS (5)
  1. ENBREL [Suspect]
     Active Substance: ETANERCEPT
     Dosage: 25 MG, 2 TIMES/WK
     Route: 065
     Dates: end: 201312
  2. ENBREL [Suspect]
     Active Substance: ETANERCEPT
     Dosage: UNK UNK, 2 TIMES/WK
     Route: 065
     Dates: start: 20170330
  3. ENBREL [Suspect]
     Active Substance: ETANERCEPT
     Dosage: 25 MG, 2 TIMES/WK
     Route: 058
     Dates: end: 20161010
  4. PLAQUENIL [Concomitant]
     Active Substance: HYDROXYCHLOROQUINE SULFATE
     Dosage: 200 MG, BID
  5. ENBREL [Suspect]
     Active Substance: ETANERCEPT
     Indication: JUVENILE IDIOPATHIC ARTHRITIS
     Dosage: 25 MG, 2 TIMES/WK
     Route: 058
     Dates: start: 20010101, end: 201111

REACTIONS (4)
  - Maternal exposure during pregnancy [Recovered/Resolved]
  - Rheumatoid arthritis [Not Recovered/Not Resolved]
  - Caesarean section [Recovered/Resolved]
  - Premature delivery [Recovered/Resolved]

NARRATIVE: CASE EVENT DATE: 2012
